FAERS Safety Report 7956134 (Version 5)
Quarter: 2012Q4

REPORT INFORMATION
  Report Type: 
  Country: US (occurrence: US)
  Receive Date: 20110523
  Receipt Date: 20121001
  Transmission Date: 20130627
  Serious: Yes (Death)
  Sender: FDA-Public Use
  Company Number: US-ELI_LILLY_AND_COMPANY-US201007007131

PATIENT
  Age: 85 Year
  Sex: Female

DRUGS (2)
  1. FORTEO [Suspect]
     Indication: OSTEOPOROSIS
     Dosage: 20 ug, daily (1/D)
     Route: 058
     Dates: start: 20100708
  2. DARVOCET [Concomitant]
     Indication: ARTHRALGIA

REACTIONS (6)
  - Anorectal disorder [Fatal]
  - Spinal compression fracture [Unknown]
  - Gait disturbance [Unknown]
  - Dysstasia [Unknown]
  - Pain [Not Recovered/Not Resolved]
  - Constipation [Unknown]
